FAERS Safety Report 7041778-0 (Version None)
Quarter: 2010Q4

REPORT INFORMATION
  Report Type: 
  Country: None (occurrence: None)
  Receive Date: 20101013
  Receipt Date: 20100805
  Transmission Date: 20110411
  Serious: No
  Sender: FDA-Public Use
  Company Number: US-ASTRAZENECA-2010SE36726

PATIENT
  Age: 86 Year
  Sex: Female
  Weight: 72.6 kg

DRUGS (1)
  1. SYMBICORT [Suspect]
     Indication: ASTHMA
     Dosage: 2PUFFS, BID
     Route: 055
     Dates: start: 20090101

REACTIONS (2)
  - DIZZINESS [None]
  - SOMNOLENCE [None]
